FAERS Safety Report 13839205 (Version 1)
Quarter: 2017Q3

REPORT INFORMATION
  Report Type: Spontaneous
  Country: NL (occurrence: NL)
  Receive Date: 20170807
  Receipt Date: 20170807
  Transmission Date: 20171127
  Serious: Yes (Other)
  Sender: FDA-Public Use
  Company Number: NL-B.I. PHARMACEUTICALS,INC./RIDGEFIELD-2017-BI-042811

PATIENT
  Age: 71 Year
  Sex: Male

DRUGS (1)
  1. AGGRENOX [Suspect]
     Active Substance: ASPIRIN\DIPYRIDAMOLE
     Indication: ANTICOAGULANT THERAPY
     Route: 065

REACTIONS (4)
  - Splenic injury [Unknown]
  - Shock [Unknown]
  - Venous haemorrhage [Unknown]
  - Large intestine perforation [Unknown]
